FAERS Safety Report 8218184-6 (Version None)
Quarter: 2012Q1

REPORT INFORMATION
  Report Type: 
  Country: None (occurrence: None)
  Receive Date: 20120319
  Receipt Date: 20120309
  Transmission Date: 20120608
  Serious: Yes (Death, Life-Threatening, Hospitalization, Other)
  Sender: FDA-Public Use
  Company Number: MX-SANOFI-AVENTIS-2012SA016398

PATIENT
  Age: 74 Year
  Sex: Female

DRUGS (3)
  1. NORFENEFRINE [Concomitant]
     Route: 048
     Dates: end: 20120201
  2. LANTUS [Suspect]
     Indication: TYPE 2 DIABETES MELLITUS
     Route: 058
     Dates: start: 20110101, end: 20120201
  3. ASPIRIN [Concomitant]
     Route: 048
     Dates: start: 20040101, end: 20120201

REACTIONS (2)
  - BRONCHITIS [None]
  - RENAL FAILURE CHRONIC [None]
